FAERS Safety Report 5024641-6 (Version None)
Quarter: 2006Q2

REPORT INFORMATION
  Report Type: 
  Country: None (occurrence: None)
  Receive Date: 20060427
  Receipt Date: 20050517
  Transmission Date: 20061013
  Serious: Yes (Other)
  Sender: FDA-Public Use
  Company Number: US-JNJFOC-20050505111

PATIENT
  Age: 65 Year
  Sex: Male

DRUGS (3)
  1. GALANTAMINE HYDROBROMIDE [Suspect]
     Indication: CEREBROVASCULAR ACCIDENT
     Dosage: 12 MG, 2 IN 1 DAY
  2. ANTIHYPERTENSIVES (ANTIHYPERTENSIVES) [Concomitant]
  3. ZOCOR [Concomitant]

REACTIONS (5)
  - COGNITIVE DISORDER [None]
  - DEPRESSION [None]
  - HALLUCINATION [None]
  - NIGHTMARE [None]
  - SUICIDAL IDEATION [None]
